FAERS Safety Report 9869435 (Version 3)
Quarter: 2014Q3

REPORT INFORMATION
  Report Type: Spontaneous
  Country: US (occurrence: US)
  Receive Date: 20140205
  Receipt Date: 20140724
  Transmission Date: 20150326
  Serious: No
  Sender: FDA-Public Use
  Company Number: US-PFIZER INC-2014029639

PATIENT
  Age: 79 Year
  Sex: Female

DRUGS (2)
  1. INLYTA [Suspect]
     Active Substance: AXITINIB
     Indication: RENAL CELL CARCINOMA
     Dosage: 2 MG, 2X/DAY (1 MG TABS)
     Route: 048
     Dates: start: 201310
  2. INLYTA [Suspect]
     Active Substance: AXITINIB
     Dosage: 2 MG, 2X/DAY (1 MG TABS)
     Route: 048
     Dates: end: 201406

REACTIONS (3)
  - Hypertension [Unknown]
  - Disease progression [Unknown]
  - Renal cell carcinoma [Unknown]
